FAERS Safety Report 10192009 (Version 1)
Quarter: 2014Q2

REPORT INFORMATION
  Report Type: Spontaneous
  Country: FR (occurrence: FR)
  Receive Date: 20140523
  Receipt Date: 20140523
  Transmission Date: 20141212
  Serious: Yes (Hospitalization)
  Sender: FDA-Public Use
  Company Number: FR-PFIZER INC-2014138381

PATIENT
  Age: 87 Year
  Sex: Female

DRUGS (9)
  1. ALDACTONE [Suspect]
     Dosage: 50 MG, 1X/DAY
     Route: 048
     Dates: end: 20140410
  2. LASILIX [Suspect]
     Dosage: 60 MG (1.5 DF OF 40 MG), 1X/DAY
     Route: 048
     Dates: end: 20140410
  3. PREVISCAN [Concomitant]
  4. LANTUS [Concomitant]
  5. CORDARONE [Concomitant]
  6. XANAX [Concomitant]
  7. TAHOR [Concomitant]
  8. ZOLPIDEM [Concomitant]
  9. CONTRAMAL [Concomitant]

REACTIONS (4)
  - Confusional state [Recovered/Resolved]
  - Renal failure acute [Recovered/Resolved]
  - Dehydration [Recovered/Resolved]
  - Hyponatraemia [Recovered/Resolved]
